FAERS Safety Report 23151805 (Version 2)
Quarter: 2023Q4

REPORT INFORMATION
  Report Type: Spontaneous
  Country: US (occurrence: None)
  Receive Date: 20231107
  Receipt Date: 20231225
  Transmission Date: 20240110
  Serious: Yes (Other)
  Sender: FDA-Public Use
  Company Number: US-ROCHE-3450075

PATIENT
  Sex: Female

DRUGS (6)
  1. VABYSMO [Suspect]
     Active Substance: FARICIMAB\FARICIMAB-SVOA
     Indication: Product used for unknown indication
     Route: 050
     Dates: start: 20230522
  2. VABYSMO [Suspect]
     Active Substance: FARICIMAB\FARICIMAB-SVOA
     Route: 050
     Dates: start: 20230630
  3. VABYSMO [Suspect]
     Active Substance: FARICIMAB\FARICIMAB-SVOA
     Route: 050
     Dates: start: 20230710
  4. VABYSMO [Suspect]
     Active Substance: FARICIMAB\FARICIMAB-SVOA
     Route: 050
     Dates: start: 20230906
  5. AVASTIN [Suspect]
     Active Substance: BEVACIZUMAB
     Indication: Product used for unknown indication
     Route: 050
     Dates: start: 20230321
  6. AVASTIN [Suspect]
     Active Substance: BEVACIZUMAB
     Route: 050
     Dates: start: 20230330

REACTIONS (3)
  - Retinal occlusive vasculitis [Not Recovered/Not Resolved]
  - Blindness [Not Recovered/Not Resolved]
  - Vitritis [Unknown]
